FAERS Safety Report 4638126-X (Version None)
Quarter: 2005Q2

REPORT INFORMATION
  Report Type: 
  Country: None (occurrence: None)
  Receive Date: 20050415
  Receipt Date: 20050321
  Transmission Date: 20051028
  Serious: Yes (Other)
  Sender: FDA-Public Use
  Company Number: 2005046440

PATIENT
  Age: 22 Year
  Sex: Female

DRUGS (7)
  1. DETROL LA [Suspect]
     Indication: HYPERTONIC BLADDER
     Dosage: 4 MG (4 MG, 1 IN 1 D), ORAL
     Route: 048
     Dates: start: 20050301, end: 20050317
  2. MECLOFENAMATE SODIUM (MECLOFENAMATE SODIUM) [Suspect]
     Indication: ILL-DEFINED DISORDER
     Dosage: (100 MG, 1 IN 6 HR)
     Dates: start: 20050307, end: 20050314
  3. SERTRALINE HCL [Concomitant]
  4. ALPRAZOLAM [Concomitant]
  5. NSAID'S (NSAID'S) [Concomitant]
  6. PHENAZOPYRIDINE HYDROCHLORIDE (PHENAZOPYRIDINE HYDROCHLORIDE) [Concomitant]
  7. HYDROCODONE BITARTRATE [Concomitant]

REACTIONS (18)
  - ANOREXIA [None]
  - DAYDREAMING [None]
  - DRY MOUTH [None]
  - DYSURIA [None]
  - FEELING ABNORMAL [None]
  - FUNGAL INFECTION [None]
  - GASTROINTESTINAL DISORDER [None]
  - HYPOAESTHESIA [None]
  - MALAISE [None]
  - MICTURITION URGENCY [None]
  - MUSCLE STRAIN [None]
  - NAUSEA [None]
  - OLIGURIA [None]
  - POLLAKIURIA [None]
  - URINARY RETENTION [None]
  - URINARY TRACT INFECTION [None]
  - VOMITING [None]
  - WEIGHT DECREASED [None]
